FAERS Safety Report 23718426 (Version 1)
Quarter: 2024Q2

REPORT INFORMATION
  Report Type: Spontaneous
  Country: US (occurrence: US)
  Receive Date: 20240408
  Receipt Date: 20240408
  Transmission Date: 20240715
  Serious: Yes (Hospitalization)
  Sender: FDA-Public Use
  Company Number: US-BRISTOL-MYERS SQUIBB COMPANY-2024-054652

PATIENT
  Age: 82 Year
  Sex: Female
  Weight: 56.6 kg

DRUGS (1)
  1. REVLIMID [Suspect]
     Active Substance: LENALIDOMIDE
     Indication: Plasma cell myeloma
     Dosage: 2W ON 2W OFF
     Route: 048
     Dates: start: 20240201

REACTIONS (2)
  - Anaemia [Recovering/Resolving]
  - Off label use [Unknown]
